FAERS Safety Report 18118247 (Version 1)
Quarter: 2020Q3

REPORT INFORMATION
  Report Type: Spontaneous
  Country: DK (occurrence: DK)
  Receive Date: 20200806
  Receipt Date: 20200806
  Transmission Date: 20201103
  Serious: Yes (Hospitalization)
  Sender: FDA-Public Use
  Company Number: NVSC2020DK216318

PATIENT
  Age: 20 Year
  Sex: Male

DRUGS (3)
  1. RIMACTAN [Suspect]
     Active Substance: RIFAMPIN
     Indication: TUBERCULOSIS
     Dosage: STRENGTH: UNKNOWN. DOSE: UNKNOWN.
     Route: 048
     Dates: start: 201805, end: 201805
  2. ISONIAZID ^OBA^ [Suspect]
     Active Substance: ISONIAZID
     Indication: TUBERCULOSIS
     Dosage: STRENGTH: 300 MG. DOSE: UNKNOWN.
     Route: 048
     Dates: start: 201805, end: 201805
  3. MOXIFLOXACIN. [Suspect]
     Active Substance: MOXIFLOXACIN
     Indication: TUBERCULOSIS
     Dosage: STRENGTH: UNKNOWN. DOSE: UNKNOWN.
     Route: 065
     Dates: start: 201805, end: 201805

REACTIONS (13)
  - Nausea [Recovered/Resolved]
  - Movement disorder [Recovered/Resolved]
  - Migraine [Not Recovered/Not Resolved]
  - Visual impairment [Not Recovered/Not Resolved]
  - Dizziness [Recovered/Resolved]
  - Pyrexia [Recovered/Resolved]
  - Hyperhidrosis [Recovered/Resolved]
  - Gastric disorder [Not Recovered/Not Resolved]
  - Aggression [Recovered/Resolved]
  - Vomiting [Recovered/Resolved]
  - Sleep disorder [Recovered/Resolved]
  - Hepatic function abnormal [Recovered/Resolved]
  - Psychotic disorder [Recovered/Resolved]

NARRATIVE: CASE EVENT DATE: 201805
